FAERS Safety Report 17118364 (Version 1)
Quarter: 2019Q4

REPORT INFORMATION
  Report Type: Spontaneous
  Country: PK (occurrence: PK)
  Receive Date: 20191205
  Receipt Date: 20191205
  Transmission Date: 20200122
  Serious: Yes (Hospitalization, Other)
  Sender: FDA-Public Use
  Company Number: PK-SA-2019SA338124

PATIENT
  Age: 42 Year
  Sex: Female

DRUGS (1)
  1. TOUJEO [Suspect]
     Active Substance: INSULIN GLARGINE
     Indication: HYPERGLYCAEMIA
     Dosage: 18 IU
     Route: 058
     Dates: start: 20191127

REACTIONS (2)
  - Diabetes mellitus inadequate control [Recovering/Resolving]
  - Pain [Unknown]
